FAERS Safety Report 9571633 (Version 1)
Quarter: 2013Q4

REPORT INFORMATION
  Report Type: Spontaneous
  Country: US (occurrence: US)
  Receive Date: 20131001
  Receipt Date: 20131001
  Transmission Date: 20140711
  Serious: No
  Sender: FDA-Public Use
  Company Number: US-BIOGENIDEC-2013BI065153

PATIENT
  Age: 52 Year
  Sex: Female

DRUGS (1)
  1. TECFIDERA [Suspect]
     Indication: MULTIPLE SCLEROSIS
     Route: 048
     Dates: start: 20130701

REACTIONS (8)
  - Flushing [Recovered/Resolved]
  - Feeling abnormal [Recovered/Resolved]
  - Burning sensation [Recovered/Resolved]
  - Erythema [Recovered/Resolved]
  - Syncope [Recovered/Resolved]
  - Hypoaesthesia [Recovered/Resolved]
  - Generalised erythema [Recovered/Resolved]
  - Blood pressure decreased [Recovered/Resolved]
